FAERS Safety Report 5757120-9 (Version None)
Quarter: 2008Q2

REPORT INFORMATION
  Report Type: 
  Country: None (occurrence: None)
  Receive Date: 20080603
  Receipt Date: 20080523
  Transmission Date: 20081010
  Serious: Yes (Disabling, Other)
  Sender: FDA-Public Use
  Company Number: US-MERCK-0802USA06430

PATIENT
  Age: 68 Year
  Sex: Female

DRUGS (3)
  1. FOSAMAX [Suspect]
     Indication: OSTEOPENIA
     Route: 048
     Dates: start: 20010817, end: 20020222
  2. FOSAMAX [Suspect]
     Route: 048
     Dates: start: 20020517, end: 20060601
  3. [THERAPY UNSPECIFIED] [Concomitant]
     Indication: RHEUMATOID ARTHRITIS
     Route: 065
     Dates: start: 20010101

REACTIONS (18)
  - ABSCESS JAW [None]
  - BLOOD CHOLESTEROL INCREASED [None]
  - BONE SWELLING [None]
  - CHRONIC GASTROINTESTINAL BLEEDING [None]
  - DENTAL NECROSIS [None]
  - FISTULA [None]
  - GINGIVAL ABSCESS [None]
  - HYPERTENSION [None]
  - INFECTION [None]
  - JAW DISORDER [None]
  - OBESITY [None]
  - OEDEMA MOUTH [None]
  - ORAL DISORDER [None]
  - ORAL INFECTION [None]
  - OSTEOARTHRITIS [None]
  - OSTEOMYELITIS [None]
  - OSTEONECROSIS [None]
  - TOOTH ABSCESS [None]
